FAERS Safety Report 20175830 (Version 1)
Quarter: 2021Q4

REPORT INFORMATION
  Report Type: Spontaneous
  Country: US (occurrence: None)
  Receive Date: 20211210
  Receipt Date: 20211210
  Transmission Date: 20220303
  Serious: No
  Sender: FDA-Public Use
  Company Number: None

PATIENT
  Age: 48 Year
  Sex: Female

DRUGS (1)
  1. CASIRIVIMAB\IMDEVIMAB [Suspect]
     Active Substance: CASIRIVIMAB\IMDEVIMAB
     Indication: SARS-CoV-2 test positive
     Dosage: OTHER FREQUENCY : ONE;?
     Route: 058
     Dates: start: 20211207, end: 20211207

REACTIONS (3)
  - Injection site erythema [None]
  - Injection site swelling [None]
  - Urticaria [None]

NARRATIVE: CASE EVENT DATE: 20211207
